FAERS Safety Report 7876095-X (Version None)
Quarter: 2011Q4

REPORT INFORMATION
  Report Type: 
  Country: None (occurrence: None)
  Receive Date: 20111031
  Receipt Date: 20111020
  Transmission Date: 20120403
  Serious: Yes (Hospitalization)
  Sender: FDA-Public Use
  Company Number: US-JNJFOC-20111009394

PATIENT
  Sex: Female

DRUGS (3)
  1. REMICADE [Suspect]
     Indication: UVEITIS
     Route: 042
     Dates: end: 20110801
  2. REMICADE [Suspect]
     Indication: EPISCLERITIS
     Route: 042
     Dates: end: 20110801
  3. REMICADE [Suspect]
     Indication: PSORIASIS
     Route: 042
     Dates: end: 20110801

REACTIONS (4)
  - DRUG INEFFECTIVE [None]
  - PSORIASIS [None]
  - MENISCUS LESION [None]
  - SALIVARY GLAND CALCULUS [None]
